FAERS Safety Report 12328505 (Version 1)
Quarter: 2016Q2

REPORT INFORMATION
  Report Type: Spontaneous
  Country: US (occurrence: US)
  Receive Date: 20160503
  Receipt Date: 20160503
  Transmission Date: 20160815
  Serious: No
  Sender: FDA-Public Use
  Company Number: US-BEH-2015048638

PATIENT
  Sex: Female

DRUGS (1)
  1. HIZENTRA [Suspect]
     Active Substance: HUMAN IMMUNOGLOBULIN G
     Indication: PRODUCT USED FOR UNKNOWN INDICATION

REACTIONS (7)
  - Osteoporosis [Unknown]
  - Decreased appetite [Unknown]
  - Bronchitis chronic [Unknown]
  - Depression [Unknown]
  - Sinus disorder [Unknown]
  - Back injury [Unknown]
  - Weight decreased [Unknown]
